FAERS Safety Report 8494382-1 (Version None)
Quarter: 2012Q2

REPORT INFORMATION
  Report Type: 
  Country: None (occurrence: None)
  Receive Date: 20120628
  Receipt Date: 20120625
  Transmission Date: 20120825
  Serious: Yes (Other)
  Sender: FDA-Public Use
  Company Number: GER/UKI/12/0024792

PATIENT
  Age: 62 Year
  Sex: Female

DRUGS (2)
  1. COLOFAC (MEBEVERINE HYDROCHLORIDE) [Concomitant]
  2. AMLODIPINE [Suspect]
     Indication: HYPERTENSION
     Dosage: 5 MG, 1 IN 1 D, ORAL
     Route: 048
     Dates: start: 20120517, end: 20120606

REACTIONS (2)
  - DIARRHOEA [None]
  - SKIN BURNING SENSATION [None]
